FAERS Safety Report 9564665 (Version 2)
Quarter: 2013Q3

REPORT INFORMATION
  Report Type: Spontaneous
  Country: US (occurrence: US)
  Receive Date: 20130930
  Receipt Date: 20130930
  Transmission Date: 20140515
  Serious: No
  Sender: FDA-Public Use
  Company Number: US-PFIZER INC-2013203817

PATIENT
  Age: 66 Year
  Sex: Female
  Weight: 64.85 kg

DRUGS (6)
  1. LEVOXYL [Suspect]
     Indication: THYROID DISORDER
     Dosage: 25 UG, UNK
     Route: 048
  2. LEVOXYL [Suspect]
     Dosage: 50 UG, UNK
     Route: 048
  3. LEVOXYL [Suspect]
     Dosage: 75 UG, UNK
     Route: 048
  4. LEVOXYL [Suspect]
     Dosage: 50 UG, UNK
     Route: 048
     Dates: start: 201301
  5. LEVOXYL [Suspect]
     Dosage: 0.5 DF (SPLITTING 75UG INTO HALF), UNK
     Route: 048
     Dates: start: 201307
  6. LEVOTHYROXINE SODIUM [Concomitant]
     Indication: THYROID DISORDER
     Dosage: UNK

REACTIONS (3)
  - Depression [Unknown]
  - Fatigue [Unknown]
  - Insomnia [Unknown]
